FAERS Safety Report 5266915-X (Version None)
Quarter: 2007Q1

REPORT INFORMATION
  Report Type: 
  Country: None (occurrence: None)
  Receive Date: 20070316
  Receipt Date: 20070309
  Transmission Date: 20070707
  Serious: Yes (Life-Threatening, Hospitalization)
  Sender: FDA-Public Use
  Company Number: 2007SE01399

PATIENT
  Age: 53 Year
  Sex: Male

DRUGS (1)
  1. LUCEN [Suspect]
     Indication: GASTROOESOPHAGEAL REFLUX DISEASE
     Route: 048
     Dates: start: 20061103, end: 20070101

REACTIONS (2)
  - HALLUCINATION [None]
  - SYNCOPE VASOVAGAL [None]
